FAERS Safety Report 7434388-4 (Version None)
Quarter: 2011Q2

REPORT INFORMATION
  Report Type: 
  Country: None (occurrence: None)
  Receive Date: 20110425
  Receipt Date: 20110418
  Transmission Date: 20111010
  Serious: Yes (Death)
  Sender: FDA-Public Use
  Company Number: PHHY2011BR32966

PATIENT
  Sex: Female

DRUGS (4)
  1. BIMATOPROST AND TIMOLOL MALEATE [Concomitant]
     Indication: GLAUCOMA
  2. GALVUS MET [Suspect]
     Indication: DIABETES MELLITUS
     Dosage: VILDAGLIPTIN 50MG AND METFORMIN 850MG
     Route: 048
  3. DIOVAN [Suspect]
     Indication: HYPERTENSION
     Dosage: 320 MG, UNK
     Route: 048
  4. OLCADIL [Suspect]
     Indication: INSOMNIA
     Dosage: 2 MG, UNK
     Route: 048

REACTIONS (1)
  - DEATH [None]
